FAERS Safety Report 14196022 (Version 2)
Quarter: 2017Q4

REPORT INFORMATION
  Report Type: Spontaneous
  Country: US (occurrence: US)
  Receive Date: 20171116
  Receipt Date: 20171122
  Transmission Date: 20180321
  Serious: Yes (Disabling)
  Sender: FDA-Public Use
  Company Number: US-BAUSCH-BL-2017-031429

PATIENT
  Age: 49 Year
  Sex: Female
  Weight: 47.67 kg

DRUGS (2)
  1. XENAZINE [Suspect]
     Active Substance: TETRABENAZINE
     Dosage: 1 TABLET TWICE DAILY BY THE SECOND WEEK.
     Route: 048
     Dates: start: 2017, end: 201711
  2. XENAZINE [Suspect]
     Active Substance: TETRABENAZINE
     Indication: AKATHISIA
     Dosage: ONE-HALF TABLET TWICE DAILY DURING THE FIRST WEEK.
     Route: 048
     Dates: start: 201710, end: 2017

REACTIONS (8)
  - Condition aggravated [Recovered/Resolved]
  - Confusional state [Not Recovered/Not Resolved]
  - Myalgia [Recovered/Resolved]
  - Loss of personal independence in daily activities [Recovered/Resolved]
  - Off label use [Recovered/Resolved]
  - Movement disorder [Recovered/Resolved]
  - Bone pain [Recovered/Resolved]
  - Fall [Recovered/Resolved]

NARRATIVE: CASE EVENT DATE: 201710
